FAERS Safety Report 8091472-2 (Version None)
Quarter: 2012Q1

REPORT INFORMATION
  Report Type: 
  Country: None (occurrence: None)
  Receive Date: 20120129
  Receipt Date: 20111104
  Transmission Date: 20120608
  Serious: No
  Sender: FDA-Public Use
  Company Number: US-ABBOTT-11P-163-0871441-00

PATIENT
  Age: 24 Year
  Sex: Female

DRUGS (8)
  1. DAILY MULTIVITAMIN [Concomitant]
     Indication: PRODUCT USED FOR UNKNOWN INDICATION
  2. HUMIRA [Suspect]
     Indication: CROHN'S DISEASE
     Dosage: 4 PENS
     Dates: start: 20111020, end: 20111020
  3. PROBIOTIC [Concomitant]
     Indication: PRODUCT USED FOR UNKNOWN INDICATION
  4. HUMIRA [Suspect]
     Dosage: 2 PENS
     Dates: start: 20111103, end: 20111103
  5. HUMIRA [Suspect]
  6. FISH OIL [Concomitant]
     Indication: PRODUCT USED FOR UNKNOWN INDICATION
  7. SUPER B COMPLEX [Concomitant]
     Indication: VITAMIN SUPPLEMENTATION
     Dosage: DAILY
  8. PENTASA [Concomitant]
     Indication: CROHN'S DISEASE
     Dosage: 500MG X 2 PILLS THREE TIMES DAILY

REACTIONS (1)
  - DIZZINESS [None]
